FAERS Safety Report 6272662-8 (Version None)
Quarter: 2009Q3

REPORT INFORMATION
  Report Type: 
  Country: None (occurrence: None)
  Receive Date: 20090717
  Receipt Date: 20090707
  Transmission Date: 20100115
  Serious: Yes (Other)
  Sender: FDA-Public Use
  Company Number: CZ-ROCHE-638989

PATIENT
  Sex: Male

DRUGS (22)
  1. MIRCERA [Suspect]
     Route: 042
     Dates: start: 20081103, end: 20081201
  2. MIRCERA [Suspect]
     Route: 042
     Dates: start: 20081229, end: 20090209
  3. MIRCERA [Suspect]
     Route: 042
     Dates: start: 20090223, end: 20090311
  4. NEORECORMON [Suspect]
     Dosage: ROUTE: SUBCUTANEOUS
     Route: 050
     Dates: start: 20050624, end: 20050630
  5. NEORECORMON [Suspect]
     Dosage: ROUTE: SUBCUTANEOUS
     Route: 050
     Dates: start: 20050701, end: 20050921
  6. NEORECORMON [Suspect]
     Dosage: ROUTE: SUBCUTANEOUS
     Route: 050
     Dates: start: 20050923, end: 20060123
  7. NEORECORMON [Suspect]
     Dosage: ROUTE: SUBCUTANEOUS
     Route: 050
     Dates: start: 20060125, end: 20061011
  8. NEORECORMON [Suspect]
     Dosage: ROUTE: SUBCUTANEOUS
     Route: 050
     Dates: start: 20061020, end: 20070108
  9. NEORECORMON [Suspect]
     Dosage: ROUTE: SUBCUTANEOUS
     Route: 050
     Dates: start: 20070110, end: 20071003
  10. NEORECORMON [Suspect]
     Dosage: ROUTE: SUBCUTANEOUS
     Route: 050
     Dates: start: 20071005, end: 20071012
  11. NEORECORMON [Suspect]
     Dosage: ROUTE: SUBCUTANEOUS
     Route: 050
     Dates: start: 20071015, end: 20071029
  12. NEORECORMON [Suspect]
     Dosage: ROUTE: SUBCUTANEOUS
     Route: 050
     Dates: start: 20071031, end: 20080107
  13. NEORECORMON [Suspect]
     Dosage: ROUTE: SUBCUTANEOUS
     Route: 050
     Dates: start: 20080109, end: 20080424
  14. NEORECORMON [Suspect]
     Dosage: ROUTE: SUBCUTANEOUS
     Route: 050
     Dates: start: 20080430, end: 20080704
  15. NEORECORMON [Suspect]
     Dosage: ROUTE: INTRAVENOUS
     Route: 050
     Dates: start: 20080707, end: 20080710
  16. NEORECORMON [Suspect]
     Dosage: ROUTE: SUBCUTANEOUS
     Route: 050
     Dates: start: 20080711, end: 20080717
  17. NEORECORMON [Suspect]
     Dosage: ROUTE: INTRAVENOUS
     Route: 050
     Dates: start: 20080718, end: 20080929
  18. NEORECORMON [Suspect]
     Dosage: ROUTE: INTRAVENOUS
     Route: 050
     Dates: start: 20081001, end: 20081006
  19. NEORECORMON [Suspect]
     Dosage: ROUTE: SUBCUTANEOUS
     Route: 050
     Dates: start: 20081008, end: 20081031
  20. NEORECORMON [Suspect]
     Dosage: ROUTE: INTRAVENOUS
     Route: 050
     Dates: start: 20090323, end: 20090406
  21. NEORECORMON [Suspect]
     Dosage: ROUTE: INTRAVENOUS
     Route: 050
     Dates: start: 20090413, end: 20090520
  22. NEORECORMON [Suspect]
     Dosage: ROUTE: SUBCUTANEOUS
     Route: 050
     Dates: start: 20090522

REACTIONS (18)
  - APLASIA PURE RED CELL [None]
  - ATRIAL FIBRILLATION [None]
  - AZOTAEMIA [None]
  - CARDIAC TAMPONADE [None]
  - COAGULOPATHY [None]
  - FOOT AMPUTATION [None]
  - HYPERTENSION [None]
  - LEG AMPUTATION [None]
  - NEPHRECTOMY [None]
  - NOSOCOMIAL INFECTION [None]
  - PNEUMONIA MYCOPLASMAL [None]
  - RESPIRATORY FAILURE [None]
  - RESPIRATORY TRACT INFECTION [None]
  - SHOCK [None]
  - THROMBOPHLEBITIS [None]
  - THROMBOSIS [None]
  - UROSEPSIS [None]
  - VENOUS INSUFFICIENCY [None]
